FAERS Safety Report 5048601-4 (Version None)
Quarter: 2006Q2

REPORT INFORMATION
  Report Type: 
  Country: None (occurrence: None)
  Receive Date: 20060601
  Receipt Date: 20060215
  Transmission Date: 20061013
  Serious: No
  Sender: FDA-Public Use
  Company Number: 2006PV008770

PATIENT
  Age: 56 Year
  Sex: Female

DRUGS (5)
  1. BYETTA [Suspect]
     Indication: DIABETES MELLITUS NON-INSULIN-DEPENDENT
     Dosage: SEE IMAGE
     Route: 058
     Dates: start: 20060114, end: 20060212
  2. BYETTA [Suspect]
     Indication: DIABETES MELLITUS NON-INSULIN-DEPENDENT
     Dosage: SEE IMAGE
     Route: 058
     Dates: start: 20060212
  3. GLUCOPHAGE [Concomitant]
  4. GLUCOTROL [Concomitant]
  5. LANTUS [Concomitant]

REACTIONS (6)
  - ABDOMINAL DISTENSION [None]
  - ABNORMAL FAECES [None]
  - ANOREXIA [None]
  - ERUCTATION [None]
  - FLATULENCE [None]
  - NAUSEA [None]
